FAERS Safety Report 18646157 (Version 2)
Quarter: 2021Q2

REPORT INFORMATION
  Report Type: Report from Study
  Country: None (occurrence: SE)
  Receive Date: 20201221
  Receipt Date: 20210416
  Transmission Date: 20210717
  Serious: Yes (Hospitalization)
  Sender: FDA-Public Use
  Company Number: SE-ABBVIE-20K-150-3682030-00

PATIENT
  Age: 57 Year
  Sex: Male

DRUGS (3)
  1. DUODOPA [Suspect]
     Active Substance: CARBIDOPA\LEVODOPA
     Dosage: CURRENT DOSAGE: MORNING DOSE: 12 ML, CONTINUOUS DOSE: 5.7 ML/H, EXTRA DOSE: 4.5 ML
     Route: 050
     Dates: start: 20201209, end: 20201216
  2. DUODOPA [Suspect]
     Active Substance: CARBIDOPA\LEVODOPA
     Indication: PARKINSON^S DISEASE
     Dosage: THERAPY DURATION: REMAINS AT 16H
     Route: 050
     Dates: start: 20201127, end: 20201209
  3. DUODOPA [Suspect]
     Active Substance: CARBIDOPA\LEVODOPA
     Dosage: CONTINUOUS DOSE INCREASED FROM 5.7ML/H TO 6.2ML/H.
     Route: 050
     Dates: start: 20201216

REACTIONS (9)
  - Hyperkinesia [Not Recovered/Not Resolved]
  - Immobile [Recovering/Resolving]
  - On and off phenomenon [Recovering/Resolving]
  - Wrong technique in device usage process [Recovered/Resolved]
  - Limb deformity [Unknown]
  - Hypokinesia [Not Recovered/Not Resolved]
  - On and off phenomenon [Unknown]
  - Musculoskeletal stiffness [Recovering/Resolving]
  - Mobility decreased [Recovered/Resolved]

NARRATIVE: CASE EVENT DATE: 2020
